FAERS Safety Report 9026250 (Version 1)
Quarter: 2013Q1

REPORT INFORMATION
  Report Type: Spontaneous
  Country: IN (occurrence: None)
  Receive Date: 20130104
  Receipt Date: 20130104
  Transmission Date: 20140127
  Serious: Yes (Hospitalization, Other)
  Sender: FDA-Public Use
  Company Number: 2012P1068303

PATIENT
  Age: 8 Month
  Sex: Female
  Weight: 6 kg

DRUGS (4)
  1. ETHAMBUTOL [Suspect]
     Indication: PULMONARY TUBERCULOSIS
  2. ISONIAZID [Suspect]
     Indication: PULMONARY TUBERCULOSIS
  3. RIFAMPICIN [Suspect]
     Indication: PULMONARY TUBERCULOSIS
  4. PYRAZINAMIDE [Suspect]
     Indication: PULMONARY TUBERCULOSIS

REACTIONS (1)
  - Paradoxical drug reaction [None]
